FAERS Safety Report 7554575-4 (Version None)
Quarter: 2011Q2

REPORT INFORMATION
  Report Type: 
  Country: None (occurrence: None)
  Receive Date: 20110614
  Receipt Date: 20110614
  Transmission Date: 20111010
  Serious: Yes (Disabling)
  Sender: FDA-Public Use
  Company Number: None

PATIENT
  Sex: Female
  Weight: 76.8 kg

DRUGS (13)
  1. BONIVA [Suspect]
     Dosage: BONIVA BY MOUTH
     Route: 048
  2. LANTUS [Concomitant]
  3. FOSAMAX [Suspect]
     Dosage: FOSAMAX BY MOUTH
     Route: 048
  4. VYTORIN [Concomitant]
  5. SIMVASTATIN [Concomitant]
  6. FISH OIL [Concomitant]
  7. JANVIA [Concomitant]
  8. NPH INSULIN [Concomitant]
  9. FERROUS SULFATE TAB [Concomitant]
  10. CALTRATE D [Concomitant]
  11. MVI ERGOCALCIFEROL [Concomitant]
  12. METFORMIN HCL [Concomitant]
  13. NASACORT [Concomitant]

REACTIONS (4)
  - FEMUR FRACTURE [None]
  - FALL [None]
  - HIP FRACTURE [None]
  - GAIT DISTURBANCE [None]
